FAERS Safety Report 9463910 (Version 1)
Quarter: 2013Q3

REPORT INFORMATION
  Report Type: Spontaneous
  Country: FR (occurrence: FR)
  Receive Date: 20130819
  Receipt Date: 20130819
  Transmission Date: 20140515
  Serious: Yes (Life-Threatening, Hospitalization)
  Sender: FDA-Public Use
  Company Number: FR-PFIZER INC-2013236256

PATIENT
  Age: 31 Month
  Sex: Female

DRUGS (4)
  1. ADVIL ENFANTS ET NOURRISSONS [Suspect]
     Indication: VARICELLA
     Dosage: 4 TO 6 PEDIATRIC DOSES
     Route: 048
     Dates: start: 20130717, end: 20130718
  2. ADVIL ENFANTS ET NOURRISSONS [Suspect]
     Indication: PYREXIA
  3. PARACETAMOL [Concomitant]
     Indication: VARICELLA
     Dosage: 60 MG/KG DAILY
     Dates: start: 20130717
  4. PARACETAMOL [Concomitant]
     Indication: PYREXIA

REACTIONS (2)
  - Wound sepsis [Not Recovered/Not Resolved]
  - Dermo-hypodermitis [Not Recovered/Not Resolved]
